FAERS Safety Report 11686231 (Version 2)
Quarter: 2015Q4

REPORT INFORMATION
  Report Type: Spontaneous
  Country: US (occurrence: US)
  Receive Date: 20151030
  Receipt Date: 20151221
  Transmission Date: 20160304
  Serious: Yes (Hospitalization, Other)
  Sender: FDA-Public Use
  Company Number: US-PFIZER INC-2015361945

PATIENT
  Age: 73 Year
  Sex: Female
  Weight: 86 kg

DRUGS (4)
  1. REVATIO [Suspect]
     Active Substance: SILDENAFIL CITRATE
     Indication: LUNG DISORDER
  2. ALEVE [Suspect]
     Active Substance: NAPROXEN SODIUM
  3. REVATIO [Suspect]
     Active Substance: SILDENAFIL CITRATE
     Indication: CHRONIC OBSTRUCTIVE PULMONARY DISEASE
  4. REVATIO [Suspect]
     Active Substance: SILDENAFIL CITRATE
     Indication: CARDIOVASCULAR DISORDER
     Dosage: 20 MG, 3X/DAY

REACTIONS (7)
  - Arterial haemorrhage [Recovered/Resolved]
  - Diarrhoea [Unknown]
  - Faeces discoloured [Unknown]
  - Ulcer haemorrhage [Recovered/Resolved]
  - Myocardial infarction [Unknown]
  - Blood count abnormal [Unknown]
  - Off label use [Unknown]

NARRATIVE: CASE EVENT DATE: 201509
